FAERS Safety Report 10038104 (Version 1)
Quarter: 2014Q1

REPORT INFORMATION
  Report Type: Spontaneous
  Country: US (occurrence: None)
  Receive Date: 20140325
  Receipt Date: 20140325
  Transmission Date: 20141002
  Serious: Yes (Other)
  Sender: FDA-Public Use
  Company Number: None

PATIENT
  Age: 81 Year
  Sex: Female

DRUGS (2)
  1. SPINAL MARCAINE 0.75% + 8.25% DEXTROSE HOSPIRA [Suspect]
     Indication: SPINAL ANAESTHESIA
     Route: 037
  2. SPINAL MARCAINE 0.75% + 8.25% DEXTROSE HOSPIRA [Suspect]
     Indication: KNEE ARTHROPLASTY
     Route: 037

REACTIONS (3)
  - Drug ineffective [None]
  - Drug effect delayed [None]
  - Therapy responder [None]
